FAERS Safety Report 5194769-9 (Version None)
Quarter: 2006Q4

REPORT INFORMATION
  Report Type: 
  Country: None (occurrence: None)
  Receive Date: 20061229
  Receipt Date: 20061220
  Transmission Date: 20070319
  Serious: Yes (Hospitalization)
  Sender: FDA-Public Use
  Company Number: PHBS2006JP19873

PATIENT
  Age: 27 Year
  Sex: Female

DRUGS (4)
  1. TEGRETOL [Suspect]
     Route: 065
     Dates: start: 20011001
  2. NEORAL [Suspect]
     Route: 065
     Dates: start: 20020301
  3. NIZATIDINE [Suspect]
     Dates: start: 20020301
  4. ADRENOCORTICOTROPHIC HORMONE [Concomitant]
     Dates: start: 20020301

REACTIONS (3)
  - ALOPECIA [None]
  - DRUG HYPERSENSITIVITY [None]
  - ERYTHEMA [None]
